FAERS Safety Report 24019747 (Version 1)
Quarter: 2024Q2

REPORT INFORMATION
  Report Type: Spontaneous
  Country: US (occurrence: US)
  Receive Date: 20240627
  Receipt Date: 20240627
  Transmission Date: 20240716
  Serious: Yes (Life-Threatening, Hospitalization, Other)
  Sender: FDA-Public Use
  Company Number: US-FreseniusKabi-FK202410015

PATIENT
  Age: 59 Year
  Sex: Male

DRUGS (2)
  1. ETOPOSIDE [Suspect]
     Active Substance: ETOPOSIDE
     Indication: Central nervous system lymphoma
     Dosage: RECEIVED 3 DAYS OF HIGH DOSE ETOPOSIDE
  2. CYTARABINE [Concomitant]
     Active Substance: CYTARABINE
     Indication: Central nervous system lymphoma

REACTIONS (2)
  - Megacolon [Unknown]
  - Septic shock [Unknown]
